FAERS Safety Report 20840740 (Version 3)
Quarter: 2022Q2

REPORT INFORMATION
  Report Type: Spontaneous
  Country: US (occurrence: US)
  Receive Date: 20220517
  Receipt Date: 20220526
  Transmission Date: 20220721
  Serious: Yes (Other)
  Sender: FDA-Public Use
  Company Number: US-PFIZER INC-202200714196

PATIENT
  Sex: Female
  Weight: 47.63 kg

DRUGS (1)
  1. DEPO-PROVERA [Suspect]
     Active Substance: MEDROXYPROGESTERONE ACETATE
     Indication: Contraception
     Dosage: UNK, EVERY 3 MONTHS
     Dates: start: 1999, end: 2007

REACTIONS (11)
  - Narcolepsy [Unknown]
  - Osteopenia [Not Recovered/Not Resolved]
  - Bone loss [Not Recovered/Not Resolved]
  - Dysmenorrhoea [Not Recovered/Not Resolved]
  - Back pain [Not Recovered/Not Resolved]
  - Muscle tightness [Unknown]
  - Headache [Not Recovered/Not Resolved]
  - Migraine [Not Recovered/Not Resolved]
  - Muscle spasms [Not Recovered/Not Resolved]
  - Movement disorder [Not Recovered/Not Resolved]
  - Osteoporosis [Not Recovered/Not Resolved]

NARRATIVE: CASE EVENT DATE: 20060101
